FAERS Safety Report 9484017 (Version 2)
Quarter: 2013Q3

REPORT INFORMATION
  Report Type: Spontaneous
  Country: CA (occurrence: CA)
  Receive Date: 20130828
  Receipt Date: 20130828
  Transmission Date: 20140515
  Serious: Yes (Death, Hospitalization)
  Sender: FDA-Public Use
  Company Number: CA-AMGEN-KDL366443

PATIENT
  Age: 81 Year
  Sex: Female

DRUGS (1)
  1. ENBREL [Suspect]
     Indication: RHEUMATOID ARTHRITIS
     Dosage: UNK UNK, QWK
     Route: 065
     Dates: start: 20070409

REACTIONS (6)
  - Death [Fatal]
  - Intestinal ischaemia [Unknown]
  - Renal failure [Unknown]
  - Sepsis [Unknown]
  - Immune system disorder [Unknown]
  - Dehydration [Unknown]
